FAERS Safety Report 9772821 (Version 1)
Quarter: 2013Q4

REPORT INFORMATION
  Report Type: Spontaneous
  Country: DZ (occurrence: DZ)
  Receive Date: 20131219
  Receipt Date: 20131219
  Transmission Date: 20140711
  Serious: Yes (Death)
  Sender: FDA-Public Use
  Company Number: DZ-ROCHE-1322855

PATIENT
  Age: 48 Year
  Sex: Female

DRUGS (4)
  1. AVASTIN [Suspect]
     Indication: COLORECTAL CANCER
     Route: 065
  2. LEUCOVORIN [Suspect]
     Indication: COLORECTAL CANCER
     Route: 065
     Dates: start: 20101204
  3. 5-FU [Suspect]
     Indication: COLORECTAL CANCER
     Route: 065
     Dates: start: 20101204
  4. OXALIPLATIN [Suspect]
     Indication: COLORECTAL CANCER
     Route: 065
     Dates: start: 20101204

REACTIONS (1)
  - Disease progression [Fatal]
